FAERS Safety Report 16294621 (Version 1)
Quarter: 2019Q2

REPORT INFORMATION
  Report Type: Spontaneous
  Country: US (occurrence: US)
  Receive Date: 20190509
  Receipt Date: 20190509
  Transmission Date: 20190711
  Serious: No
  Sender: FDA-Public Use
  Company Number: US-ROCHE-2109969

PATIENT
  Sex: Male

DRUGS (15)
  1. BETAMETHASONE VALERATE. [Concomitant]
     Active Substance: BETAMETHASONE VALERATE
     Dosage: 0.1%
     Route: 065
  2. AMLODIPINE [Concomitant]
     Active Substance: AMLODIPINE BESYLATE
     Route: 065
  3. ISOSORBIDE MONONITRATE ER [Concomitant]
     Active Substance: ISOSORBIDE MONONITRATE
     Route: 065
  4. ZETIA [Concomitant]
     Active Substance: EZETIMIBE
     Route: 065
  5. GABAPENTIN. [Concomitant]
     Active Substance: GABAPENTIN
     Route: 065
  6. KLOR-CON M10 [Concomitant]
     Active Substance: POTASSIUM CHLORIDE
     Dosage: 10 MEQ
     Route: 065
  7. LEVEMIR [Concomitant]
     Active Substance: INSULIN DETEMIR
  8. FUROSEMIDE. [Concomitant]
     Active Substance: FUROSEMIDE
     Route: 065
  9. ESBRIET [Suspect]
     Active Substance: PIRFENIDONE
     Indication: TYPE V HYPERLIPIDAEMIA
     Route: 065
  10. METFORMIN [Concomitant]
     Active Substance: METFORMIN HYDROCHLORIDE
     Route: 065
  11. LISINOPRIL. [Concomitant]
     Active Substance: LISINOPRIL
     Route: 065
  12. METOPROLOL TARTRATE. [Concomitant]
     Active Substance: METOPROLOL TARTRATE
     Route: 065
  13. CLOTRIMAZOLE. [Concomitant]
     Active Substance: CLOTRIMAZOLE
     Dosage: 1%
     Route: 065
  14. FENOFIBRATE. [Concomitant]
     Active Substance: FENOFIBRATE
     Route: 065
  15. NIACIN. [Concomitant]
     Active Substance: NIACIN
     Route: 065

REACTIONS (1)
  - Abdominal discomfort [Not Recovered/Not Resolved]
